FAERS Safety Report 13651788 (Version 2)
Quarter: 2017Q3

REPORT INFORMATION
  Report Type: Report from Study
  Country: RU (occurrence: RU)
  Receive Date: 20170614
  Receipt Date: 20170716
  Transmission Date: 20171127
  Serious: Yes (Life-Threatening, Hospitalization, Other)
  Sender: FDA-Public Use
  Company Number: RU-AMGEN-RUSSP2017060743

PATIENT
  Age: 7 Year
  Sex: Male

DRUGS (6)
  1. TAZOCIN [Concomitant]
     Active Substance: PIPERACILLIN SODIUM\TAZOBACTAM SODIUM
     Dosage: 4 G, TID
     Route: 042
     Dates: start: 20170406
  2. BLINATUMOMAB [Suspect]
     Active Substance: BLINATUMOMAB
     Indication: ACUTE LYMPHOCYTIC LEUKAEMIA
     Dosage: 6.1 MUG/ML, QD
     Route: 042
     Dates: start: 20170406, end: 20170412
  3. BLINATUMOMAB [Suspect]
     Active Substance: BLINATUMOMAB
     Dosage: 18.3 MUG/ML, QD
     Route: 042
     Dates: start: 20170414, end: 20170419
  4. BLINATUMOMAB [Suspect]
     Active Substance: BLINATUMOMAB
     Dosage: 15 MUG/ML, QD
     Route: 042
     Dates: start: 20170413
  5. AMIKACIN [Concomitant]
     Active Substance: AMIKACIN
     Dosage: 600 MG, QD
     Route: 042
     Dates: start: 20170406
  6. VANCOMYCIN [Concomitant]
     Active Substance: VANCOMYCIN
     Dosage: 1600 MG, QD
     Route: 042
     Dates: start: 20170406

REACTIONS (4)
  - Tremor [Recovered/Resolved]
  - Pyrexia [Recovered/Resolved]
  - Seizure [Recovered/Resolved]
  - Depressed level of consciousness [Recovered/Resolved]

NARRATIVE: CASE EVENT DATE: 20170410
